FAERS Safety Report 8593204-8 (Version None)
Quarter: 2012Q3

REPORT INFORMATION
  Report Type: 
  Country: None (occurrence: None)
  Receive Date: 20120814
  Receipt Date: 20120801
  Transmission Date: 20120928
  Serious: Yes (Other)
  Sender: FDA-Public Use
  Company Number: GB-FRI-1000030767

PATIENT
  Sex: Male
  Weight: 70 kg

DRUGS (8)
  1. MEMANTINE HCL [Suspect]
     Dosage: 5 MG
     Route: 048
     Dates: end: 20120201
  2. COLECALCIFEROL [Concomitant]
     Dosage: 800/250 MG
     Route: 048
  3. ALLOPURINOL [Concomitant]
     Dosage: 200 MG
     Route: 048
  4. GLICLAZIDE [Concomitant]
     Dosage: 320 MG
     Route: 048
  5. TAMSULOSIN HCL [Concomitant]
     Dosage: 40 MG
     Route: 048
  6. CITALOPRAM [Concomitant]
     Dosage: 10 MG
     Route: 048
  7. FELODIPINE [Concomitant]
     Dosage: 2.5 MG
     Route: 048
  8. MEMANTINE HCL [Suspect]
     Indication: DEMENTIA
     Dosage: 10 MG
     Route: 048
     Dates: start: 20120120, end: 20120401

REACTIONS (5)
  - CONVULSION [None]
  - MOBILITY DECREASED [None]
  - OFF LABEL USE [None]
  - TRANSIENT ISCHAEMIC ATTACK [None]
  - SOMNOLENCE [None]
